FAERS Safety Report 5034981-2 (Version None)
Quarter: 2006Q2

REPORT INFORMATION
  Report Type: 
  Country: None (occurrence: None)
  Receive Date: 20060627
  Receipt Date: 20041118
  Transmission Date: 20061013
  Serious: Yes (Hospitalization, Other)
  Sender: FDA-Public Use
  Company Number: 2004GB02841

PATIENT
  Age: 25991 Day
  Sex: Female

DRUGS (4)
  1. ARIMIDEX [Suspect]
     Indication: BREAST CANCER
     Route: 048
     Dates: start: 19980520, end: 20030520
  2. NOLVADEX [Suspect]
     Indication: BREAST CANCER
     Route: 048
     Dates: start: 19980520, end: 20030520
  3. METOCLOPRAMIDE [Concomitant]
     Indication: INCREASED UPPER AIRWAY SECRETION
     Route: 048
  4. RESAPIN [Concomitant]
     Indication: BLADDER DISORDER
     Route: 048

REACTIONS (1)
  - UTERINE POLYP [None]
